FAERS Safety Report 9978702 (Version 1)
Quarter: 2014Q1

REPORT INFORMATION
  Report Type: Report from Study
  Country: US (occurrence: US)
  Receive Date: 20140306
  Receipt Date: 20140306
  Transmission Date: 20141002
  Serious: No
  Sender: FDA-Public Use
  Company Number: US-ABBVIE-13P-163-1171761-00

PATIENT
  Age: 69 Year
  Sex: Male

DRUGS (7)
  1. HUMIRA [Suspect]
     Indication: CROHN^S DISEASE
     Dosage: LOADING DOSE
     Dates: start: 20131114, end: 20131114
  2. HUMIRA [Suspect]
  3. PROBENECID [Concomitant]
     Indication: GOUT
  4. IMODIUM [Concomitant]
     Indication: PRODUCT USED FOR UNKNOWN INDICATION
  5. LOMOTIL [Concomitant]
     Indication: DIARRHOEA
     Dosage: ONE WITH HIS IMODIUM AND ONE BEFORE DINNER
  6. FLOMAX [Concomitant]
     Indication: PROSTATIC DISORDER
  7. ENTOCORT [Concomitant]
     Indication: PRODUCT USED FOR UNKNOWN INDICATION
     Dosage: TAPERING OFF IT

REACTIONS (2)
  - Injection site haemorrhage [Recovering/Resolving]
  - Injection site pain [Recovering/Resolving]
